FAERS Safety Report 25904092 (Version 1)
Quarter: 2025Q4

REPORT INFORMATION
  Report Type: Spontaneous
  Country: CA (occurrence: CA)
  Receive Date: 20251010
  Receipt Date: 20251010
  Transmission Date: 20260118
  Serious: Yes (Hospitalization, Other)
  Sender: TOLMAR
  Company Number: CA-Tolmar-TLM-2025-07420

PATIENT
  Age: 86 Year
  Sex: Male

DRUGS (2)
  1. LEUPROLIDE ACETATE [Suspect]
     Active Substance: LEUPROLIDE ACETATE
     Indication: Prostate cancer
     Route: 030
  2. ELIGARD [Suspect]
     Active Substance: LEUPROLIDE ACETATE
     Indication: Prostate cancer

REACTIONS (8)
  - Diverticulitis [Recovered/Resolved]
  - Dry skin [Recovered/Resolved]
  - Gait disturbance [Recovered/Resolved]
  - Inappropriate schedule of product administration [Recovered/Resolved]
  - Intestinal haemorrhage [Recovered/Resolved]
  - Asthenia [Recovered/Resolved]
  - Fatigue [Recovered/Resolved]
  - Gastroenteritis [Recovered/Resolved]
